FAERS Safety Report 9157723 (Version 1)
Quarter: 2013Q1

REPORT INFORMATION
  Report Type: Report from Study
  Country: US (occurrence: US)
  Receive Date: 20130312
  Receipt Date: 20130312
  Transmission Date: 20140127
  Serious: Yes (Hospitalization)
  Sender: FDA-Public Use
  Company Number: US-009507513-1303USA003690

PATIENT
  Sex: Male

DRUGS (3)
  1. BOCEPREVIR [Suspect]
     Indication: HEPATITIS C
     Dosage: UNK
     Dates: end: 20130303
  2. RIBAVIRIN [Suspect]
     Indication: HEPATITIS C
     Dosage: 1200 MG, QD
     Dates: start: 20130203, end: 20130302
  3. INTERFERON ALFA [Suspect]
     Indication: HEPATITIS C
     Dosage: 180 MICROGRAM, QW
     Dates: start: 20130203, end: 20130302

REACTIONS (16)
  - Orchitis [Unknown]
  - Blood potassium decreased [Unknown]
  - Fungal infection [Unknown]
  - Abdominal pain upper [Unknown]
  - Pain [Unknown]
  - Malaise [Unknown]
  - White blood cell count decreased [Unknown]
  - Influenza like illness [Unknown]
  - Anxiety [Unknown]
  - Fatigue [Unknown]
  - Platelet count decreased [Unknown]
  - Chills [Unknown]
  - Nausea [Unknown]
  - Vomiting [Unknown]
  - Red blood cell count decreased [Unknown]
  - Anaemia [Unknown]
